FAERS Safety Report 8172525-7 (Version None)
Quarter: 2012Q1

REPORT INFORMATION
  Report Type: 
  Country: None (occurrence: None)
  Receive Date: 20120229
  Receipt Date: 20120217
  Transmission Date: 20120608
  Serious: Yes (Hospitalization)
  Sender: FDA-Public Use
  Company Number: US-BAYER-2011-040144

PATIENT
  Age: 21 Year
  Sex: Female
  Weight: 57.143 kg

DRUGS (6)
  1. YAZ [Suspect]
     Indication: CONTRACEPTION
     Dosage: UNK
     Dates: start: 20100801, end: 20101001
  2. YAZ [Suspect]
     Indication: PREMENSTRUAL SYNDROME
  3. TRIPHASIL-21 [Concomitant]
     Dosage: UNK
     Dates: start: 20100811
  4. ACETAMINOPHEN [Concomitant]
     Indication: HEADACHE
     Dosage: 500 MG, QD
  5. LIALDA [Concomitant]
     Indication: COLITIS ULCERATIVE
     Dosage: 1.2 G, QD
     Dates: start: 20090101
  6. IBUPROFEN TABLETS [Concomitant]
     Dosage: UNK
     Dates: start: 20100801

REACTIONS (6)
  - THROMBOSIS [None]
  - PULMONARY EMBOLISM [None]
  - JOINT SWELLING [None]
  - ARTHRALGIA [None]
  - URINARY TRACT INFECTION [None]
  - INJURY [None]
